FAERS Safety Report 12457121 (Version 1)
Quarter: 2016Q2

REPORT INFORMATION
  Report Type: Spontaneous
  Country: US (occurrence: US)
  Receive Date: 20160610
  Receipt Date: 20160610
  Transmission Date: 20160815
  Serious: Yes (Life-Threatening, Hospitalization, Other)
  Sender: FDA-Public Use
  Company Number: US-MALLINCKRODT-T201600814

PATIENT
  Age: 8 Year
  Sex: Male
  Weight: 55 kg

DRUGS (5)
  1. RECOTHROM [Suspect]
     Active Substance: THROMBIN ALFA
     Indication: EPISTAXIS
     Dosage: ORDERED 5000 UNITS PRN TOPICAL
     Route: 042
     Dates: start: 20151014, end: 20151014
  2. AMICAR [Concomitant]
     Active Substance: AMINOCAPROIC ACID
     Dosage: 2000 MG, QID
     Route: 048
     Dates: end: 201510
  3. OCEAN NASAL [Concomitant]
     Dosage: 1 SPRAY EACH NOSTRIL, TID
     Route: 045
  4. WILATE [Concomitant]
     Active Substance: HUMAN COAGULATION FACTOR VIII/VON WILLEBRAND FACTOR COMPLEX
     Dosage: 2400 RCO UNITS
  5. FERROUS SULFATE. [Concomitant]
     Active Substance: FERROUS SULFATE
     Dosage: 325 MG, BID
     Route: 048

REACTIONS (5)
  - Incorrect route of drug administration [Unknown]
  - Cerebral ischaemia [Recovered/Resolved]
  - Cardio-respiratory arrest [Recovered/Resolved]
  - Wrong drug administered [Unknown]
  - Cerebral artery embolism [Recovered/Resolved]

NARRATIVE: CASE EVENT DATE: 20151014
